FAERS Safety Report 24630529 (Version 2)
Quarter: 2025Q1

REPORT INFORMATION
  Report Type: Spontaneous
  Country: US (occurrence: US)
  Receive Date: 20241118
  Receipt Date: 20250116
  Transmission Date: 20250409
  Serious: No
  Sender: ASCENT PHARMACEUTICALS INC
  Company Number: US-ASCENT-2024ASSPO00046

PATIENT
  Age: 65 Year
  Sex: Male

DRUGS (1)
  1. POTASSIUM CITRATE [Suspect]
     Active Substance: POTASSIUM CITRATE
     Indication: Nephrolithiasis
     Route: 065

REACTIONS (3)
  - Product residue present [Unknown]
  - Product solubility abnormal [Unknown]
  - Product substitution issue [Unknown]
